FAERS Safety Report 17755093 (Version 1)
Quarter: 2020Q2

REPORT INFORMATION
  Report Type: Spontaneous
  Country: FR (occurrence: FR)
  Receive Date: 20200507
  Receipt Date: 20200507
  Transmission Date: 20200714
  Serious: Yes (Other)
  Sender: FDA-Public Use
  Company Number: NVSC2020FR121798

PATIENT
  Age: 2 Month
  Sex: Male
  Weight: 2 kg

DRUGS (7)
  1. JOSACINE [Suspect]
     Active Substance: JOSAMYCIN
     Indication: SEPSIS
     Dosage: UNK
     Route: 042
     Dates: start: 20191210, end: 20191226
  2. VANCOMYCIN SANDOZ [Suspect]
     Active Substance: VANCOMYCIN
     Indication: SEPSIS
     Dosage: UNK
     Route: 042
     Dates: start: 20191220, end: 20191230
  3. PARACETAMOL [Suspect]
     Active Substance: ACETAMINOPHEN
     Indication: PAIN
     Dosage: 30 MG/KG, QD
     Route: 042
     Dates: start: 201911, end: 20200102
  4. CEFOTAXIME [Suspect]
     Active Substance: CEFOTAXIME SODIUM
     Indication: SEPSIS
     Dosage: UNK
     Route: 042
     Dates: start: 20191226, end: 20191230
  5. GENTAMICINE PANPHARMA [Suspect]
     Active Substance: GENTAMICIN
     Indication: SEPSIS
     Dosage: UNK
     Route: 042
     Dates: start: 20191220, end: 20191222
  6. AMPHOTERICIN B, LIPOSOME [Suspect]
     Active Substance: AMPHOTERICIN B
     Indication: CANDIDA INFECTION
     Dosage: UNK
     Route: 042
     Dates: start: 20191227, end: 20200202
  7. FLUCONAZOLE ARROW [Suspect]
     Active Substance: FLUCONAZOLE
     Indication: CANDIDA INFECTION
     Dosage: UNK
     Route: 042
     Dates: start: 20191224, end: 20191227

REACTIONS (2)
  - Hypertransaminasaemia [Not Recovered/Not Resolved]
  - Gamma-glutamyltransferase increased [Not Recovered/Not Resolved]

NARRATIVE: CASE EVENT DATE: 20200102
